FAERS Safety Report 9490933 (Version 1)
Quarter: 2013Q3

REPORT INFORMATION
  Report Type: Spontaneous
  Country: US (occurrence: US)
  Receive Date: 20130830
  Receipt Date: 20130830
  Transmission Date: 20140515
  Serious: Yes (Other)
  Sender: FDA-Public Use
  Company Number: US-SUN PHARMACEUTICAL INDUSTRIES LTD-2013SUN04545

PATIENT
  Age: 62 Year
  Sex: Female

DRUGS (3)
  1. ZOLPIDEM TARTRATE 10 MG TABLET [Suspect]
     Indication: INSOMNIA
     Dosage: 10 MG, NIGHTLY
     Route: 048
  2. ZOLPIDEM TARTRATE 10 MG TABLET [Interacting]
     Dosage: 2 OR 3 10 MG PILLS
     Route: 048
  3. PAROXETINE HYDROCHLORIDE 10 MG TABLET [Interacting]
     Indication: ANXIETY
     Dosage: 10 MG, DAILY
     Route: 048

REACTIONS (11)
  - Homicide [Unknown]
  - Drug interaction [Unknown]
  - Self injurious behaviour [Unknown]
  - Delirium [Unknown]
  - Mental disorder [Unknown]
  - Nervous system disorder [Unknown]
  - Confusional state [Unknown]
  - Altered state of consciousness [Unknown]
  - Delusion [Unknown]
  - Amnesia [Unknown]
  - Overdose [Unknown]
